FAERS Safety Report 24930439 (Version 1)
Quarter: 2025Q1

REPORT INFORMATION
  Report Type: Other
  Country: JP (occurrence: JP)
  Receive Date: 20250205
  Receipt Date: 20250205
  Transmission Date: 20250409
  Serious: Yes (Other)
  Sender: PL DEVELOPMENTS
  Company Number: JP-P+L Developments of Newyork Corporation-2170530

PATIENT
  Age: 17 Year
  Sex: Male

DRUGS (2)
  1. IBUPROFEN [Suspect]
     Active Substance: IBUPROFEN
     Indication: Histiocytic necrotising lymphadenitis
  2. CYCLOSPORINE [Suspect]
     Active Substance: CYCLOSPORINE

REACTIONS (3)
  - Hypothermia [Recovered/Resolved]
  - Hypotension [Recovered/Resolved]
  - Bradycardia [Recovered/Resolved]
